FAERS Safety Report 14159471 (Version 2)
Quarter: 2017Q4

REPORT INFORMATION
  Report Type: Spontaneous
  Country: JP (occurrence: JP)
  Receive Date: 20171106
  Receipt Date: 20171229
  Transmission Date: 20180321
  Serious: Yes (Death)
  Sender: FDA-Public Use
  Company Number: JP-ACTELION-A-CH2017-161660

PATIENT
  Age: 76 Year
  Sex: Male

DRUGS (1)
  1. OPSUMIT [Suspect]
     Active Substance: MACITENTAN
     Indication: PULMONARY HYPERTENSION
     Dosage: 2.5 MG, QD
     Route: 048
     Dates: start: 20170912, end: 20171006

REACTIONS (1)
  - Disseminated intravascular coagulation [Fatal]

NARRATIVE: CASE EVENT DATE: 20171017
